FAERS Safety Report 5370520-4 (Version None)
Quarter: 2007Q2

REPORT INFORMATION
  Report Type: 
  Country: None (occurrence: None)
  Receive Date: 20070625
  Receipt Date: 20070625
  Transmission Date: 20071010
  Serious: Yes (Other)
  Sender: FDA-Public Use
  Company Number: None

PATIENT
  Age: 55 Year
  Sex: Female
  Weight: 108.8633 kg

DRUGS (9)
  1. ALLERX DF 2.5 MG METHSCOPOLAMINE CORNERSTONE BIOPHARMA, INC. [Suspect]
     Indication: POSTNASAL DRIP
     Dosage: 2.5 MG METHOSCOPOLAMINE 2 TIMES DAILY PO
     Route: 048
     Dates: start: 20070604, end: 20070605
  2. CHLORPHENIRAMINE MALEATE [Suspect]
     Dosage: 4-8 MG
  3. HYDROCHLOROTHIAZIDE [Concomitant]
  4. DOXAZOSIN MESYLATE [Concomitant]
  5. ALTACE [Concomitant]
  6. LEVOTHYROXINE SODIUM [Concomitant]
  7. LEXAPRO [Concomitant]
  8. DARVOCET [Concomitant]
  9. LORAZEPAM [Concomitant]

REACTIONS (14)
  - ABDOMINAL PAIN [None]
  - ASTHENIA [None]
  - BLOOD SODIUM DECREASED [None]
  - CHEST PAIN [None]
  - DIZZINESS [None]
  - ERYTHEMA [None]
  - FEAR [None]
  - FEELING HOT [None]
  - MALAISE [None]
  - PAIN [None]
  - PAIN IN EXTREMITY [None]
  - SPLEEN DISORDER [None]
  - THIRST [None]
  - TINNITUS [None]
